FAERS Safety Report 13921968 (Version 4)
Quarter: 2017Q4

REPORT INFORMATION
  Report Type: Spontaneous
  Country: UA (occurrence: UA)
  Receive Date: 20170830
  Receipt Date: 20171027
  Transmission Date: 20180320
  Serious: Yes (Other)
  Sender: FDA-Public Use
  Company Number: UA-ASTRAZENECA-2017SE87706

PATIENT
  Age: 18346 Day
  Sex: Male
  Weight: 70 kg

DRUGS (7)
  1. BRILINTA [Suspect]
     Active Substance: TICAGRELOR
     Indication: ACUTE MYOCARDIAL INFARCTION
     Route: 048
     Dates: start: 20170804
  2. BETALOC ZOK [Concomitant]
     Active Substance: METOPROLOL SUCCINATE
  3. ASPIRIN. [Concomitant]
     Active Substance: ASPIRIN
  4. ENALAPRIL [Concomitant]
     Active Substance: ENALAPRIL
  5. METOPROLOL. [Concomitant]
     Active Substance: METOPROLOL
  6. CRESTOR [Concomitant]
     Active Substance: ROSUVASTATIN CALCIUM
  7. ATORVASTATIN [Concomitant]
     Active Substance: ATORVASTATIN

REACTIONS (3)
  - Vascular stent thrombosis [Recovered/Resolved]
  - Dyspnoea [Recovered/Resolved]
  - Coronary artery dissection [Unknown]

NARRATIVE: CASE EVENT DATE: 20170809
